FAERS Safety Report 8219849-2 (Version None)
Quarter: 2012Q1

REPORT INFORMATION
  Report Type: 
  Country: None (occurrence: None)
  Receive Date: 20120319
  Receipt Date: 20120308
  Transmission Date: 20120608
  Serious: Yes (Other)
  Sender: FDA-Public Use
  Company Number: US-ASTRAZENECA-2010SE58321

PATIENT
  Age: 80 Year
  Sex: Female

DRUGS (7)
  1. SYMBICORT [Suspect]
     Dosage: 160/4.5 UG UNKNOWN
     Route: 055
  2. CELEBREX [Concomitant]
  3. VICODIN [Concomitant]
  4. PULMICORT [Concomitant]
     Route: 055
  5. NEXIUM [Suspect]
     Route: 048
     Dates: end: 20100401
  6. ALBUTEROL [Concomitant]
  7. NAPROXEN (ALEVE) [Concomitant]

REACTIONS (11)
  - DYSPEPSIA [None]
  - ASTHMA [None]
  - GASTROOESOPHAGEAL REFLUX DISEASE [None]
  - ODYNOPHAGIA [None]
  - SCIATICA [None]
  - EXOSTOSIS [None]
  - ARTHRITIS [None]
  - PAIN [None]
  - PNEUMONIA [None]
  - MALAISE [None]
  - DRUG DOSE OMISSION [None]
